FAERS Safety Report 18332819 (Version 2)
Quarter: 2020Q4

REPORT INFORMATION
  Report Type: Spontaneous
  Country: JP (occurrence: JP)
  Receive Date: 20201001
  Receipt Date: 20201008
  Transmission Date: 20210113
  Serious: Yes (Hospitalization, Other)
  Sender: FDA-Public Use
  Company Number: JP-AMGEN-JPNSP2020157881

PATIENT
  Age: 56 Year
  Sex: Male
  Weight: 65 kg

DRUGS (7)
  1. REGPARA [Concomitant]
     Active Substance: CINACALCET HYDROCHLORIDE
     Dosage: 37.5 MG, EVERYDAY
     Route: 048
     Dates: end: 20190723
  2. REGPARA [Concomitant]
     Active Substance: CINACALCET HYDROCHLORIDE
     Dosage: 4 MG, EVERYDAY
     Route: 048
     Dates: start: 20190904
  3. ONEALFA [Concomitant]
     Active Substance: ALFACALCIDOL
     Dosage: 0.25 UG, EVERYDAY
     Route: 048
  4. ORKEDIA [Concomitant]
     Active Substance: EVOCALCET
     Dosage: 2 MG, EVERYDAY
     Route: 048
     Dates: start: 20190724, end: 20190903
  5. FOSRENOL [Concomitant]
     Active Substance: LANTHANUM CARBONATE
     Dosage: 1250 MG, EVERYDAY
     Route: 048
  6. PARSABIV [Suspect]
     Active Substance: ETELCALCETIDE HYDROCHLORIDE
     Indication: HYPERPARATHYROIDISM SECONDARY
     Dosage: UNK
     Route: 010
  7. TANKARU [Concomitant]
     Dosage: 3.0 G, EVERYDAY
     Route: 065

REACTIONS (2)
  - Shunt stenosis [Recovered/Resolved]
  - Cardiac failure [Recovered/Resolved]

NARRATIVE: CASE EVENT DATE: 20191027
